FAERS Safety Report 7594254-0 (Version None)
Quarter: 2011Q3

REPORT INFORMATION
  Report Type: 
  Country: None (occurrence: None)
  Receive Date: 20110706
  Receipt Date: 20110706
  Transmission Date: 20111222
  Serious: Yes (Death, Life-Threatening, Hospitalization, Disabling, Congenital Anomaly, Other)
  Sender: FDA-Public Use
  Company Number: None

PATIENT
  Age: 42 Year
  Sex: Male
  Weight: 90.718 kg

DRUGS (1)
  1. PROPECIA [Suspect]

REACTIONS (3)
  - DRY EYE [None]
  - SKIN ATROPHY [None]
  - SKIN WRINKLING [None]
